FAERS Safety Report 4754698-9 (Version None)
Quarter: 2005Q3

REPORT INFORMATION
  Report Type: 
  Country: None (occurrence: None)
  Receive Date: 20050829
  Receipt Date: 20050311
  Transmission Date: 20060218
  Serious: Yes (Hospitalization)
  Sender: FDA-Public Use
  Company Number: US-MERCK-0503USA02597

PATIENT
  Age: 59 Year
  Sex: Female
  Weight: 58 kg

DRUGS (4)
  1. VIOXX [Suspect]
     Indication: OSTEOARTHRITIS
     Route: 048
     Dates: start: 20040101, end: 20040101
  2. FOSAMAX [Concomitant]
     Indication: OSTEOPOROSIS
     Route: 065
  3. TYLENOL [Concomitant]
     Indication: ANALGESIC EFFECT
     Route: 065
     Dates: start: 20020101
  4. CALCIUM (UNSPECIFIED) [Concomitant]
     Route: 065

REACTIONS (7)
  - ANEURYSM [None]
  - BLOOD CHOLESTEROL INCREASED [None]
  - BLOOD DISORDER [None]
  - CEREBROVASCULAR ACCIDENT [None]
  - COAGULOPATHY [None]
  - GASTROOESOPHAGEAL REFLUX DISEASE [None]
  - HYPERTENSION [None]
